FAERS Safety Report 13579501 (Version 1)
Quarter: 2017Q2

REPORT INFORMATION
  Report Type: Spontaneous
  Country: US (occurrence: US)
  Receive Date: 20170525
  Receipt Date: 20170525
  Transmission Date: 20170830
  Serious: Yes (Life-Threatening, Other)
  Sender: FDA-Public Use
  Company Number: US-TORRENT-00002756

PATIENT
  Age: 28 Year
  Sex: Male

DRUGS (8)
  1. GABAPENTIN. [Interacting]
     Active Substance: GABAPENTIN
  2. ZOLPIDEM [Interacting]
     Active Substance: ZOLPIDEM\ZOLPIDEM TARTRATE
  3. MELATONIN [Interacting]
     Active Substance: MELATONIN
  4. PRAZOSIN. [Concomitant]
     Active Substance: PRAZOSIN
  5. FLUOXETINE [Suspect]
     Active Substance: FLUOXETINE HYDROCHLORIDE
  6. HYDROXYZINE [Interacting]
     Active Substance: HYDROXYZINE HYDROCHLORIDE
  7. PROPRANOLOL [Concomitant]
     Active Substance: PROPRANOLOL HYDROCHLORIDE
  8. TRAMADOL. [Interacting]
     Active Substance: TRAMADOL

REACTIONS (4)
  - Suicidal behaviour [Recovered/Resolved]
  - Abnormal sleep-related event [Recovered/Resolved]
  - Parasomnia [Recovered/Resolved]
  - Drug interaction [Recovered/Resolved]
